FAERS Safety Report 7477139-X (Version None)
Quarter: 2011Q2

REPORT INFORMATION
  Report Type: 
  Country: None (occurrence: None)
  Receive Date: 20110512
  Receipt Date: 20110201
  Transmission Date: 20111010
  Serious: No
  Sender: FDA-Public Use
  Company Number: US-NOVEN-11US001711

PATIENT
  Sex: Male

DRUGS (2)
  1. DAYTRANA [Suspect]
     Dosage: 15 MG X 9 HRS, QD
     Route: 062
     Dates: start: 20110101
  2. DAYTRANA [Suspect]
     Indication: ATTENTION DEFICIT/HYPERACTIVITY DISORDER
     Dosage: 10 MG X 9 HRS QD
     Route: 062
     Dates: start: 20110101

REACTIONS (4)
  - DECREASED APPETITE [None]
  - PSYCHOMOTOR HYPERACTIVITY [None]
  - INSOMNIA [None]
  - INCORRECT DRUG ADMINISTRATION DURATION [None]
